FAERS Safety Report 16327332 (Version 1)
Quarter: 2019Q2

REPORT INFORMATION
  Report Type: Spontaneous
  Country: US (occurrence: US)
  Receive Date: 20190517
  Receipt Date: 20190517
  Transmission Date: 20190711
  Serious: Yes (Death, Hospitalization)
  Sender: FDA-Public Use
  Company Number: US-STEMLINE THERAPEUTICS, INC.-2019ST000030

PATIENT
  Sex: Male
  Weight: 71.5 kg

DRUGS (3)
  1. ELZONRIS [Suspect]
     Active Substance: TAGRAXOFUSP-ERZS
     Dosage: DAILY TIMES 5 DAYS (FIRST CYCLE)
     Route: 042
     Dates: start: 20190429, end: 20190503
  2. ELZONRIS [Suspect]
     Active Substance: TAGRAXOFUSP-ERZS
     Dosage: DAILY TIMES 5 DAYS
     Route: 042
  3. ELZONRIS [Suspect]
     Active Substance: TAGRAXOFUSP-ERZS
     Indication: BLASTIC PLASMACYTOID DENDRITIC CELL NEOPLASIA
     Route: 042

REACTIONS (5)
  - Cardiac arrest [Fatal]
  - Hypoxia [Fatal]
  - Capillary leak syndrome [Fatal]
  - Sepsis [Fatal]
  - Tachycardia [Fatal]
